FAERS Safety Report 5868797-1 (Version None)
Quarter: 2008Q3

REPORT INFORMATION
  Report Type: 
  Country: None (occurrence: None)
  Receive Date: 20080902
  Receipt Date: 20080902
  Transmission Date: 20090109
  Serious: Yes (Hospitalization)
  Sender: FDA-Public Use
  Company Number: None

PATIENT
  Age: 40 Year
  Sex: Male
  Weight: 73.9363 kg

DRUGS (1)
  1. TRAMADOL HYDROCHLORIDE [Suspect]
     Indication: CONTUSION
     Dosage: 1 TAB 1 OTHER
     Route: 050
     Dates: start: 20080828

REACTIONS (15)
  - AGITATION [None]
  - ASTHENIA [None]
  - DIZZINESS [None]
  - FEAR [None]
  - HAEMOPTYSIS [None]
  - HYPERHIDROSIS [None]
  - IMPAIRED WORK ABILITY [None]
  - INFLUENZA LIKE ILLNESS [None]
  - LOSS OF CONSCIOUSNESS [None]
  - MALAISE [None]
  - NAUSEA [None]
  - NERVOUSNESS [None]
  - PAIN [None]
  - SOMNOLENCE [None]
  - TREMOR [None]
